FAERS Safety Report 5280897-6 (Version None)
Quarter: 2007Q1

REPORT INFORMATION
  Report Type: 
  Country: None (occurrence: None)
  Receive Date: 20070323
  Receipt Date: 20070315
  Transmission Date: 20070707
  Serious: Yes (Hospitalization)
  Sender: FDA-Public Use
  Company Number: 163-21880-06110125

PATIENT
  Age: 76 Year
  Sex: Male

DRUGS (1)
  1. REVLIMID [Suspect]
     Indication: MULTIPLE MYELOMA
     Dosage: 25 MG, DAILY FOR 21 DAYS, ORAL
     Route: 048
     Dates: start: 20060901

REACTIONS (5)
  - ABDOMINAL PAIN UPPER [None]
  - CHOLELITHIASIS [None]
  - DIZZINESS [None]
  - MALAISE [None]
  - MUSCLE SPASMS [None]
